FAERS Safety Report 19109262 (Version 1)
Quarter: 2021Q2

REPORT INFORMATION
  Report Type: Spontaneous
  Country: US (occurrence: US)
  Receive Date: 20210408
  Receipt Date: 20210408
  Transmission Date: 20210717
  Serious: No
  Sender: FDA-Public Use
  Company Number: US-SA-2021SA115253

PATIENT
  Age: 52 Year
  Sex: Female

DRUGS (2)
  1. DUPIXENT [Suspect]
     Active Substance: DUPILUMAB
     Indication: CHRONIC SINUSITIS
     Dosage: 300MG
     Route: 058
     Dates: start: 20210305
  2. COVID?19 VACCINE NOS. [Suspect]
     Active Substance: COVID-19 VACCINE NOS
     Dates: start: 20210310

REACTIONS (5)
  - Ear pain [Unknown]
  - Facial pain [Unknown]
  - Hyposmia [Unknown]
  - Off label use [Unknown]
  - Hypogeusia [Unknown]
